FAERS Safety Report 25060073 (Version 2)
Quarter: 2025Q2

REPORT INFORMATION
  Report Type: Report from Study
  Country: EE (occurrence: EE)
  Receive Date: 20250310
  Receipt Date: 20250404
  Transmission Date: 20250717
  Serious: Yes (Death, Other)
  Sender: ABBVIE
  Company Number: EE-ABBVIE-6170009

PATIENT
  Age: 69 Year
  Sex: Male

DRUGS (3)
  1. CARBIDOPA\LEVODOPA [Suspect]
     Active Substance: CARBIDOPA\LEVODOPA
     Indication: Parkinson^s disease
     Route: 050
     Dates: start: 20170707, end: 20250306
  2. CARBIDOPA\LEVODOPA [Suspect]
     Active Substance: CARBIDOPA\LEVODOPA
  3. CLOZAPINE [Concomitant]
     Active Substance: CLOZAPINE
     Indication: Parkinson^s disease
     Route: 048
     Dates: end: 20250306

REACTIONS (6)
  - Sudden death [Fatal]
  - Living in residential institution [Unknown]
  - Fall [Unknown]
  - Blood pressure decreased [Unknown]
  - Pulse absent [Unknown]
  - Bedridden [Unknown]

NARRATIVE: CASE EVENT DATE: 20250306
